FAERS Safety Report 4917711-1 (Version None)
Quarter: 2006Q1

REPORT INFORMATION
  Report Type: 
  Country: None (occurrence: None)
  Receive Date: 20060221
  Receipt Date: 20060210
  Transmission Date: 20060701
  Serious: Yes (Life-Threatening)
  Sender: FDA-Public Use
  Company Number: IT-ROCHE-435890

PATIENT
  Age: 16 Year
  Sex: Female

DRUGS (4)
  1. ROCEPHIN [Suspect]
     Dosage: FORMULATION REPORTED AS VIAL. STRENGTH: 2 GRAM
     Route: 042
     Dates: start: 20040917, end: 20040922
  2. ROCEPHIN [Suspect]
     Dosage: FORMULATION REPORTED AS VIAL. STRENGTH: 1 GRAM
     Route: 042
     Dates: start: 20040923, end: 20040924
  3. ACYCLOVIR [Interacting]
     Route: 065
     Dates: start: 20040917, end: 20040917
  4. ACYCLOVIR [Interacting]
     Route: 065
     Dates: start: 20040918, end: 20040926

REACTIONS (2)
  - DRUG INTERACTION [None]
  - RENAL FAILURE [None]
